FAERS Safety Report 18050354 (Version 2)
Quarter: 2021Q4

REPORT INFORMATION
  Report Type: Spontaneous
  Country: US (occurrence: US)
  Receive Date: 20200721
  Receipt Date: 20211115
  Transmission Date: 20220304
  Serious: Yes (Other)
  Sender: FDA-Public Use
  Company Number: US-SAARTEMIS-SAC202007160341

PATIENT
  Age: 66 Year
  Sex: Male

DRUGS (2)
  1. ZANTAC [Suspect]
     Active Substance: RANITIDINE HYDROCHLORIDE
     Indication: Dyspepsia
     Dosage: 25 MG, QD
     Dates: start: 200009, end: 200009
  2. ZANTAC [Suspect]
     Active Substance: RANITIDINE HYDROCHLORIDE
     Dosage: 75 MG, QD

REACTIONS (2)
  - Bladder cancer [Unknown]
  - Prostate cancer stage I [Unknown]

NARRATIVE: CASE EVENT DATE: 20160301
